FAERS Safety Report 8076406-9 (Version None)
Quarter: 2012Q1

REPORT INFORMATION
  Report Type: 
  Country: None (occurrence: None)
  Receive Date: 20120127
  Receipt Date: 20120127
  Transmission Date: 20120608
  Serious: No
  Sender: FDA-Public Use
  Company Number: None

PATIENT
  Age: 67 Year
  Sex: Female
  Weight: 52.163 kg

DRUGS (2)
  1. VIIBRYD [Concomitant]
     Indication: DEPRESSION
     Dosage: 30 MG.
     Route: 002
  2. LAMICTAL [Suspect]
     Indication: DEPRESSION
     Dosage: 50 MG.
     Route: 002

REACTIONS (4)
  - PHOTOPHOBIA [None]
  - QUALITY OF LIFE DECREASED [None]
  - DIPLOPIA [None]
  - VISION BLURRED [None]
